FAERS Safety Report 5489567-2 (Version None)
Quarter: 2007Q4

REPORT INFORMATION
  Report Type: 
  Country: None (occurrence: None)
  Receive Date: 20071016
  Receipt Date: 20071016
  Transmission Date: 20080405
  Serious: Yes (Hospitalization, Other)
  Sender: FDA-Public Use
  Company Number: None

PATIENT
  Age: 77 Year
  Sex: Female
  Weight: 60.8 kg

DRUGS (7)
  1. DOXORUBICIN HCL [Suspect]
     Indication: BREAST CANCER
     Dosage: 60 MG/M2 EVERY 21 DAYS IV BOLUS 4 CYCLES
     Route: 040
  2. LOVASTATIN [Concomitant]
  3. HYDROCHLOROTHIAZIDE [Concomitant]
  4. LEVOTHYROXINE SODIUM [Concomitant]
  5. ARIMIDEX [Concomitant]
  6. DETROL LA [Concomitant]
  7. POTASSIUM CHLORIDE [Concomitant]

REACTIONS (5)
  - CARDIAC FAILURE CONGESTIVE [None]
  - DYSPNOEA [None]
  - HEPATIC CONGESTION [None]
  - HEPATIC ENZYME INCREASED [None]
  - PLEURAL EFFUSION [None]
